FAERS Safety Report 4709380-0 (Version None)
Quarter: 2005Q3

REPORT INFORMATION
  Report Type: 
  Country: None (occurrence: None)
  Receive Date: 20050706
  Receipt Date: 20050706
  Transmission Date: 20060218
  Serious: Yes (Hospitalization)
  Sender: FDA-Public Use
  Company Number: None

PATIENT
  Age: 83 Year
  Sex: Female

DRUGS (5)
  1. HYDROCHLOROTHIAZIDE [Suspect]
     Indication: HYPERTENSION
     Dosage: 12.5MG    EVERYDAY   ORAL
     Route: 048
     Dates: start: 20050401, end: 20050510
  2. LISINOPRIL [Suspect]
     Indication: HYPERTENSION
     Dosage: 10MG   EVERYDAY   ORAL
     Route: 048
     Dates: start: 20040317, end: 20050510
  3. AMIODARONE HCL [Concomitant]
  4. ZOCOR [Concomitant]
  5. ROBITUSSIN [Concomitant]

REACTIONS (4)
  - ASTHENIA [None]
  - CHEST DISCOMFORT [None]
  - COUGH [None]
  - HYPONATRAEMIA [None]
